FAERS Safety Report 7684328-8 (Version None)
Quarter: 2011Q3

REPORT INFORMATION
  Report Type: 
  Country: None (occurrence: None)
  Receive Date: 20110815
  Receipt Date: 20110811
  Transmission Date: 20111222
  Serious: Yes (Hospitalization, Other)
  Sender: FDA-Public Use
  Company Number: US-BRISTOL-MYERS SQUIBB COMPANY-15549561

PATIENT
  Age: 84 Year
  Sex: Male
  Weight: 66 kg

DRUGS (1)
  1. ERBITUX [Suspect]
     Indication: HEAD AND NECK CANCER
     Dosage: OVER 2 HRS LOADING DOSE
     Route: 042
     Dates: start: 20110113

REACTIONS (5)
  - GAIT DISTURBANCE [None]
  - DIARRHOEA [None]
  - THROMBOSIS [None]
  - APHASIA [None]
  - SYNCOPE [None]
